FAERS Safety Report 16647331 (Version 3)
Quarter: 2020Q3

REPORT INFORMATION
  Report Type: Report from Study
  Country: DE (occurrence: DE)
  Receive Date: 20190730
  Receipt Date: 20200710
  Transmission Date: 20201102
  Serious: Yes (Hospitalization, Other)
  Sender: FDA-Public Use
  Company Number: DE-PHARMING-PHADE2019000454

PATIENT

DRUGS (5)
  1. RUCONEST [Suspect]
     Active Substance: HUMAN C1-ESTERASE INHIBITOR
     Dosage: UNK, QD
     Dates: start: 201907, end: 201908
  2. RUCONEST [Suspect]
     Active Substance: HUMAN C1-ESTERASE INHIBITOR
     Dosage: 4200 IU, 3?4 TIMES WEEKLY PRECAUTIONARY
     Route: 042
  3. RUCONEST [Suspect]
     Active Substance: HUMAN C1-ESTERASE INHIBITOR
     Dosage: UNK UNK, AS NEEDED
     Dates: start: 201909
  4. RUCONEST [Suspect]
     Active Substance: HUMAN C1-ESTERASE INHIBITOR
     Indication: HEREDITARY ANGIOEDEMA
     Dosage: 4200 IU, EVERY 3 DAYS
  5. TAKHZYRO [Concomitant]
     Active Substance: LANADELUMAB-FLYO
     Indication: HEREDITARY ANGIOEDEMA
     Dosage: UNK, EVERY 2 WEEKS
     Route: 058
     Dates: start: 201909

REACTIONS (3)
  - Basal cell carcinoma [Recovered/Resolved]
  - Intentional product use issue [Recovered/Resolved]
  - Product use in unapproved indication [Recovered/Resolved]
